FAERS Safety Report 9234520 (Version 1)
Quarter: 2013Q2

REPORT INFORMATION
  Report Type: Spontaneous
  Country: US (occurrence: US)
  Receive Date: 20130416
  Receipt Date: 20130416
  Transmission Date: 20140414
  Serious: No
  Sender: FDA-Public Use
  Company Number: US-BANPHARM-20120317

PATIENT
  Age: 79 Year
  Sex: Male
  Weight: 56.7 kg

DRUGS (3)
  1. ALEVE LIQUID GELS 220MG [Suspect]
     Indication: MYALGIA
     Dosage: 1 DF, BID,
     Route: 048
     Dates: start: 201210, end: 201210
  2. NATURE MADE CALCIUM [Concomitant]
  3. SYNTHROID [Concomitant]

REACTIONS (8)
  - Abdominal discomfort [Recovering/Resolving]
  - Nausea [Recovering/Resolving]
  - Decreased appetite [Recovering/Resolving]
  - Dizziness [Recovering/Resolving]
  - Discomfort [Recovering/Resolving]
  - Middle insomnia [Recovering/Resolving]
  - Erythema [Recovering/Resolving]
  - Rash pruritic [Recovering/Resolving]
